FAERS Safety Report 13018414 (Version 2)
Quarter: 2016Q4

REPORT INFORMATION
  Report Type: Spontaneous
  Country: US (occurrence: US)
  Receive Date: 20161212
  Receipt Date: 20161223
  Transmission Date: 20170207
  Serious: Yes (Death)
  Sender: FDA-Public Use
  Company Number: US-INSYS THERAPEUTICS, INC-INS201611-000751

PATIENT
  Age: 61 Year
  Sex: Male

DRUGS (3)
  1. SUBSYS [Suspect]
     Active Substance: FENTANYL
     Indication: BREAKTHROUGH PAIN
     Dates: start: 2012
  2. MS CONTIN [Concomitant]
     Active Substance: MORPHINE SULFATE
  3. SUBSYS [Suspect]
     Active Substance: FENTANYL
     Dates: start: 201608

REACTIONS (1)
  - Neoplasm progression [Fatal]

NARRATIVE: CASE EVENT DATE: 20161111
